FAERS Safety Report 8094260-6 (Version None)
Quarter: 2012Q1

REPORT INFORMATION
  Report Type: 
  Country: None (occurrence: None)
  Receive Date: 20120131
  Receipt Date: 20120123
  Transmission Date: 20120608
  Serious: Yes (Hospitalization, Congenital Anomaly)
  Sender: FDA-Public Use
  Company Number: FR-PFIZER INC-K201000032

PATIENT
  Age: 1 Day
  Sex: Male
  Weight: 1.54 kg

DRUGS (10)
  1. PLAVIX [Suspect]
     Dosage: 75 MG, 1X/DAY
     Route: 064
     Dates: end: 20090916
  2. ASPIRIN [Concomitant]
     Dosage: 160 MG, UNK
     Route: 064
  3. RAMIPRIL [Suspect]
     Dosage: 5 MG, 1X/DAY
     Route: 064
     Dates: end: 20090916
  4. ATORVASTATIN [Suspect]
     Dosage: 80 MG, 1X/DAY
     Route: 064
     Dates: end: 20090916
  5. ATENOLOL [Concomitant]
     Dosage: 200 MG, 1X/DAY
     Dates: start: 20090916
  6. HUMALOG [Suspect]
     Dosage: UNK
     Route: 064
     Dates: end: 20090928
  7. LANTUS [Suspect]
     Dosage: UNK
     Route: 064
     Dates: end: 20090928
  8. ALLOPURINOL [Suspect]
     Dosage: 200 MG, 1X/DAY
     Route: 064
     Dates: end: 20090928
  9. METFORMIN HCL [Suspect]
     Dosage: 3 G, 1X/DAY
     Route: 064
     Dates: end: 20090916
  10. OMACOR [Concomitant]
     Dosage: UNK
     Dates: start: 20090916, end: 20090928

REACTIONS (9)
  - CAESAREAN SECTION [None]
  - JAUNDICE NEONATAL [None]
  - PREMATURE BABY [None]
  - PLACENTAL DISORDER [None]
  - FOETAL CEREBROVASCULAR DISORDER [None]
  - FOETAL GROWTH RESTRICTION [None]
  - MATERNAL EXPOSURE DURING PREGNANCY [None]
  - HYPOGLYCAEMIA NEONATAL [None]
  - NEONATAL RESPIRATORY DISTRESS SYNDROME [None]
